FAERS Safety Report 5037381-4 (Version None)
Quarter: 2006Q2

REPORT INFORMATION
  Report Type: 
  Country: None (occurrence: None)
  Receive Date: 20060622
  Receipt Date: 20060616
  Transmission Date: 20061013
  Serious: Yes (Hospitalization)
  Sender: FDA-Public Use
  Company Number: 2006-02436

PATIENT
  Age: 21 Year
  Sex: Male

DRUGS (2)
  1. DICLOFENAC [Suspect]
     Indication: PHARYNGOLARYNGEAL PAIN
     Dates: end: 20030701
  2. IBUPROFEN [Suspect]
     Indication: PHARYNGOLARYNGEAL PAIN
     Dates: end: 20030701

REACTIONS (2)
  - DIABETES MELLITUS INSULIN-DEPENDENT [None]
  - DRUG HYPERSENSITIVITY [None]
